FAERS Safety Report 23556584 (Version 3)
Quarter: 2024Q1

REPORT INFORMATION
  Report Type: Spontaneous
  Country: JP (occurrence: JP)
  Receive Date: 20240223
  Receipt Date: 20240307
  Transmission Date: 20240409
  Serious: Yes (Hospitalization, Other)
  Sender: FDA-Public Use
  Company Number: JP-MSD-M2024-00355

PATIENT
  Age: 46 Year
  Sex: Male

DRUGS (2)
  1. LAGEVRIO [Suspect]
     Active Substance: MOLNUPIRAVIR
     Indication: COVID-19 treatment
     Dosage: 800 MILLIGRAM, BID
     Route: 048
     Dates: start: 20240106, end: 20240110
  2. SOTROVIMAB [Concomitant]
     Active Substance: SOTROVIMAB
     Indication: COVID-19
     Dosage: UNK
     Route: 051
     Dates: start: 20240105

REACTIONS (11)
  - Hypertension [Unknown]
  - Cerebellar infarction [Unknown]
  - Cerebral infarction [Unknown]
  - Muscular weakness [Unknown]
  - Taste disorder [Unknown]
  - Staphylococcal infection [Unknown]
  - Tracheostomy [Unknown]
  - Blood potassium decreased [Unknown]
  - Bacterial infection [Unknown]
  - Inflammation [Unknown]
  - White blood cell count decreased [Recovered/Resolved]

NARRATIVE: CASE EVENT DATE: 20240109
